FAERS Safety Report 18493172 (Version 2)
Quarter: 2020Q4

REPORT INFORMATION
  Report Type: Not Available
  Country: US (occurrence: US)
  Receive Date: 20201111
  Receipt Date: 20201125
  Transmission Date: 20210114
  Serious: Yes (Other)
  Sender: FDA-Public Use
  Company Number: US-NEUROCRINE BIOSCIENCES INC.-2020NBI04009

PATIENT
  Age: 49 Year
  Sex: Male

DRUGS (5)
  1. SEROQUEL XR [Concomitant]
     Active Substance: QUETIAPINE FUMARATE
     Dosage: AT BEDTIME
  2. RISPERIDONE. [Concomitant]
     Active Substance: RISPERIDONE
  3. LORAZEPAM. [Concomitant]
     Active Substance: LORAZEPAM
  4. DEPAKOTE [Concomitant]
     Active Substance: DIVALPROEX SODIUM
     Dosage: AT BEDTIME
  5. INGREZZA [Suspect]
     Active Substance: VALBENAZINE
     Indication: TARDIVE DYSKINESIA
     Route: 048
     Dates: start: 20200511

REACTIONS (2)
  - Therapeutic response unexpected [Unknown]
  - Tumour excision [Recovered/Resolved]

NARRATIVE: CASE EVENT DATE: 2020
